FAERS Safety Report 8509652-8 (Version None)
Quarter: 2012Q3

REPORT INFORMATION
  Report Type: 
  Country: None (occurrence: None)
  Receive Date: 20120713
  Receipt Date: 20120706
  Transmission Date: 20120928
  Serious: Yes (Death, Other)
  Sender: FDA-Public Use
  Company Number: GB-NAPPMUNDI-GBR-2011-0009075

PATIENT
  Sex: Female

DRUGS (4)
  1. OXYCODONE HCL [Suspect]
     Indication: PRODUCT USED FOR UNKNOWN INDICATION
     Dosage: UNK
     Route: 048
     Dates: start: 20110519, end: 20111017
  2. OPIUM/NALOXONE TAB [Suspect]
     Indication: PRODUCT USED FOR UNKNOWN INDICATION
     Dosage: 40 MG, BID
     Route: 048
     Dates: start: 20100709, end: 20111017
  3. DIAMORPHINE [Suspect]
     Indication: PRODUCT USED FOR UNKNOWN INDICATION
     Dosage: 160 MG, SEE TEXT
     Route: 042
     Dates: start: 20111017
  4. OXYCONTIN [Suspect]
     Indication: PRODUCT USED FOR UNKNOWN INDICATION
     Dosage: 80 MG, BID
     Route: 048
     Dates: start: 20110527, end: 20111017

REACTIONS (3)
  - DEATH [None]
  - CONDITION AGGRAVATED [None]
  - LOSS OF CONSCIOUSNESS [None]
